FAERS Safety Report 10842232 (Version 1)
Quarter: 2015Q1

REPORT INFORMATION
  Report Type: Spontaneous
  Country: US (occurrence: US)
  Receive Date: 20150220
  Receipt Date: 20150220
  Transmission Date: 20150721
  Serious: No
  Sender: FDA-Public Use
  Company Number: US-TEVA-485231USA

PATIENT
  Age: 66 Year
  Sex: Female

DRUGS (4)
  1. LIPITOR [Concomitant]
     Active Substance: ATORVASTATIN CALCIUM
  2. LISINOPRIL. [Concomitant]
     Active Substance: LISINOPRIL
  3. THYROXINE [Concomitant]
     Active Substance: LEVOTHYROXINE
  4. FLUOCINONIDE. [Suspect]
     Active Substance: FLUOCINONIDE
     Indication: ANAL FISSURE
     Dates: start: 20140508, end: 20140515

REACTIONS (2)
  - Impaired healing [Recovering/Resolving]
  - Anorectal discomfort [Recovering/Resolving]
